FAERS Safety Report 22950117 (Version 8)
Quarter: 2025Q1

REPORT INFORMATION
  Report Type: Spontaneous
  Country: US (occurrence: US)
  Receive Date: 20230915
  Receipt Date: 20250220
  Transmission Date: 20250408
  Serious: No
  Sender: PFIZER
  Company Number: US-PFIZER INC-PV202300154974

PATIENT
  Age: 66 Year
  Sex: Female

DRUGS (1)
  1. PREMPRO [Suspect]
     Active Substance: ESTROGENS, CONJUGATED\MEDROXYPROGESTERONE ACETATE

REACTIONS (5)
  - Influenza [Unknown]
  - Memory impairment [Unknown]
  - Gastroenteritis viral [Unknown]
  - Sluggishness [Unknown]
  - Headache [Unknown]

NARRATIVE: CASE EVENT DATE: 20230901
